FAERS Safety Report 8357857-1 (Version None)
Quarter: 2012Q2

REPORT INFORMATION
  Report Type: 
  Country: None (occurrence: None)
  Receive Date: 20120514
  Receipt Date: 20120504
  Transmission Date: 20120825
  Serious: Yes (Other)
  Sender: FDA-Public Use
  Company Number: BR-ABBOTT-12P-020-0932516-00

PATIENT
  Sex: Female
  Weight: 104 kg

DRUGS (6)
  1. BROMAZEPAM [Concomitant]
     Indication: SLEEP DISORDER
     Dosage: AT NIGHT
     Route: 048
  2. HUMIRA [Suspect]
     Indication: RHEUMATOID ARTHRITIS
     Route: 058
  3. LYRICA [Concomitant]
     Indication: PAIN
     Dosage: IN THE MORNING / AT NIGHT
     Route: 048
  4. SIMVASTATIN [Concomitant]
     Indication: BLOOD CHOLESTEROL INCREASED
     Dosage: AT NIGHT
     Route: 048
  5. ATENOLOL [Concomitant]
     Indication: HYPERTENSION
     Dosage: IN THE MORNING
     Route: 048
  6. DIOVAN [Concomitant]
     Indication: HYPERTENSION
     Dosage: 160 MG + 25 MG (IN THE MORNING)
     Route: 048

REACTIONS (7)
  - GAIT DISTURBANCE [None]
  - ARTHRALGIA [None]
  - ARTHROPATHY [None]
  - JOINT SWELLING [None]
  - PAIN [None]
  - ABASIA [None]
  - OVERWEIGHT [None]
